FAERS Safety Report 12190272 (Version 5)
Quarter: 2016Q3

REPORT INFORMATION
  Report Type: Report from Study
  Country: PA (occurrence: PA)
  Receive Date: 20160318
  Receipt Date: 20160823
  Transmission Date: 20161109
  Serious: Yes (Other)
  Sender: FDA-Public Use
  Company Number: PHHY2016PA036343

PATIENT
  Age: 90 Year
  Sex: Female

DRUGS (1)
  1. EXELON PATCH [Suspect]
     Active Substance: RIVASTIGMINE
     Indication: DEMENTIA ALZHEIMER^S TYPE
     Dosage: UNK
     Route: 062

REACTIONS (18)
  - Speech disorder [Unknown]
  - Hallucination, visual [Not Recovered/Not Resolved]
  - Decreased activity [Not Recovered/Not Resolved]
  - Yellow skin [Unknown]
  - Transient ischaemic attack [Unknown]
  - Ischaemic stroke [Recovered/Resolved]
  - Alopecia [Unknown]
  - Dyspnoea [Unknown]
  - Blood glucose increased [Recovering/Resolving]
  - Blood sodium decreased [Recovering/Resolving]
  - Contusion [Unknown]
  - Abasia [Not Recovered/Not Resolved]
  - Brain hypoxia [Unknown]
  - Tremor [Unknown]
  - Jaundice [Recovered/Resolved]
  - Pruritus generalised [Recovered/Resolved]
  - Middle insomnia [Recovering/Resolving]
  - Fall [Unknown]

NARRATIVE: CASE EVENT DATE: 201602
